FAERS Safety Report 7003885-8 (Version None)
Quarter: 2010Q3

REPORT INFORMATION
  Report Type: 
  Country: None (occurrence: None)
  Receive Date: 20100917
  Receipt Date: 20100908
  Transmission Date: 20110219
  Serious: Yes (Hospitalization)
  Sender: FDA-Public Use
  Company Number: AXC-2010-000238

PATIENT
  Age: 42 Year
  Sex: Male

DRUGS (2)
  1. SUCRALFATE [Suspect]
     Indication: PRODUCT USED FOR UNKNOWN INDICATION
     Dosage: 1 G, QID
  2. FAMOTIDINE [Suspect]
     Indication: PRODUCT USED FOR UNKNOWN INDICATION
     Dosage: 20 MG, BID, INTRAVENOUS, 40 MG, BID, INTRAVENOUS
     Route: 042

REACTIONS (7)
  - BEZOAR [None]
  - JAUNDICE [None]
  - LIVER FUNCTION TEST ABNORMAL [None]
  - MELAENA [None]
  - PAROSMIA [None]
  - SENSATION OF FOREIGN BODY [None]
  - ULCER [None]
